FAERS Safety Report 8315825-X (Version None)
Quarter: 2012Q2

REPORT INFORMATION
  Report Type: 
  Country: None (occurrence: None)
  Receive Date: 20120427
  Receipt Date: 20120419
  Transmission Date: 20120825
  Serious: Yes (Other)
  Sender: FDA-Public Use
  Company Number: DE-BIOGENIDEC-2012BI002792

PATIENT
  Age: 56 Year
  Sex: Male
  Weight: 93 kg

DRUGS (13)
  1. AZATHIOPRINE [Concomitant]
     Dates: start: 20120101, end: 20120131
  2. DOPAMINE ANTAGONIST [Concomitant]
  3. BRONCHOSPASMOLYTIC [Concomitant]
  4. AZATHIOPRINE [Concomitant]
     Dates: start: 20120201, end: 20120314
  5. AZATHIOPRINE [Concomitant]
     Dates: start: 20120315
  6. ANTI-MUSCARINIC AGENTS [Concomitant]
  7. AZATHIOPRINE [Concomitant]
     Dates: start: 20111201, end: 20111231
  8. AZATHIOPRINE [Concomitant]
     Dates: start: 20110823, end: 20110912
  9. LIPIDSENKER [Concomitant]
  10. NSAIDS [Concomitant]
  11. AZATHIOPRINE [Concomitant]
     Indication: MULTIPLE SCLEROSIS
     Dates: start: 20110802, end: 20110822
  12. TYSABRI [Suspect]
     Indication: MULTIPLE SCLEROSIS
     Route: 042
     Dates: start: 20090224, end: 20110620
  13. AZATHIOPRINE [Concomitant]
     Dates: start: 20111101, end: 20111130

REACTIONS (1)
  - LIVER FUNCTION TEST ABNORMAL [None]
